FAERS Safety Report 9033750 (Version 3)
Quarter: 2013Q3

REPORT INFORMATION
  Report Type: Spontaneous
  Country: CA (occurrence: CA)
  Receive Date: 20130128
  Receipt Date: 20130917
  Transmission Date: 20140515
  Serious: Yes (Other)
  Sender: FDA-Public Use
  Company Number: CA-AMGEN-CANSP2012034632

PATIENT
  Age: 61 Year
  Sex: Female
  Weight: 47.73 kg

DRUGS (1)
  1. PROLIA [Suspect]
     Indication: OSTEOPOROSIS POSTMENOPAUSAL
     Dosage: 60 MG, Q6MO
     Route: 058
     Dates: start: 20110608

REACTIONS (3)
  - Hepatic congestion [Unknown]
  - Diarrhoea [Unknown]
  - Faecal incontinence [Not Recovered/Not Resolved]
